FAERS Safety Report 19309981 (Version 3)
Quarter: 2021Q2

REPORT INFORMATION
  Report Type: Spontaneous
  Country: GR (occurrence: GR)
  Receive Date: 20210526
  Receipt Date: 20210615
  Transmission Date: 20210717
  Serious: Yes (Hospitalization, Other)
  Sender: FDA-Public Use
  Company Number: GR-SA-2021SA171291

PATIENT
  Age: 35 Year
  Sex: Female

DRUGS (4)
  1. CYCLOSPORINE. [Concomitant]
     Active Substance: CYCLOSPORINE
  2. DELTIUS [Concomitant]
     Active Substance: CHOLECALCIFEROL
  3. CORTISONE [Concomitant]
     Active Substance: CORTISONE
  4. LEMTRADA [Suspect]
     Active Substance: ALEMTUZUMAB
     Indication: MULTIPLE SCLEROSIS
     Dosage: UNK
     Route: 065
     Dates: start: 20200929, end: 20201002

REACTIONS (8)
  - Serum ferritin increased [Recovering/Resolving]
  - Hypertriglyceridaemia [Unknown]
  - Hepatic enzyme increased [Recovering/Resolving]
  - Thrombocytopenia [Unknown]
  - Splenomegaly [Unknown]
  - Pyrexia [Recovered/Resolved]
  - Hepatomegaly [Unknown]
  - Haemophagocytic lymphohistiocytosis [Unknown]
